FAERS Safety Report 6752790-0 (Version None)
Quarter: 2010Q2

REPORT INFORMATION
  Report Type: 
  Country: None (occurrence: None)
  Receive Date: 20100602
  Receipt Date: 20100602
  Transmission Date: 20101027
  Serious: Yes (Hospitalization)
  Sender: FDA-Public Use
  Company Number: None

PATIENT
  Age: 51 Year
  Sex: Male
  Weight: 81.28 kg

DRUGS (1)
  1. TELAVANCIN [Suspect]
     Indication: OSTEOMYELITIS
     Dosage: 800 MG DAILY IV DRIP
     Route: 041
     Dates: start: 20100517, end: 20100531

REACTIONS (1)
  - RENAL FAILURE ACUTE [None]
